FAERS Safety Report 21043487 (Version 1)
Quarter: 2022Q3

REPORT INFORMATION
  Report Type: Spontaneous
  Country: US (occurrence: None)
  Receive Date: 20220702
  Receipt Date: 20220702
  Transmission Date: 20221027
  Serious: Yes (Other)
  Sender: FDA-Public Use
  Company Number: None

PATIENT
  Age: 26 Year
  Sex: Female
  Weight: 69.3 kg

DRUGS (8)
  1. TOPIRAMATE [Suspect]
     Active Substance: TOPIRAMATE
     Indication: Migraine with aura
     Dosage: OTHER QUANTITY : 180 TABLET(S);?FREQUENCY : TWICE A DAY;?
     Route: 048
     Dates: start: 20210809, end: 20220702
  2. TOPIRAMATE [Suspect]
     Active Substance: TOPIRAMATE
     Indication: Hemiplegic migraine
  3. Tirosinr [Concomitant]
  4. TOPIRAMATE [Concomitant]
     Active Substance: TOPIRAMATE
  5. VITAMIN D NOS [Concomitant]
     Active Substance: VITAMIN D NOS
  6. OMEGA 3 [Concomitant]
     Active Substance: CAPSAICIN
  7. INOSITOL [Concomitant]
     Active Substance: INOSITOL
  8. DIMETHYL SULFONE [Concomitant]
     Active Substance: DIMETHYL SULFONE

REACTIONS (7)
  - Weight decreased [None]
  - Fatigue [None]
  - Paraesthesia [None]
  - Product substitution issue [None]
  - Weight increased [None]
  - Migraine [None]
  - Drug ineffective [None]

NARRATIVE: CASE EVENT DATE: 20220702
